FAERS Safety Report 7341796-9 (Version None)
Quarter: 2011Q1

REPORT INFORMATION
  Report Type: 
  Country: None (occurrence: None)
  Receive Date: 20110309
  Receipt Date: 20110307
  Transmission Date: 20110831
  Serious: Yes (Other)
  Sender: FDA-Public Use
  Company Number: US-PFIZER INC-2011017662

PATIENT
  Sex: Female

DRUGS (3)
  1. LYRICA [Suspect]
     Indication: NEUROPATHY PERIPHERAL
     Dosage: UNK
     Dates: end: 20101227
  2. NEURONTIN [Suspect]
     Indication: PAIN
     Dosage: UNK
     Dates: start: 20101201
  3. LANTUS [Suspect]
     Indication: DIABETES MELLITUS
     Dosage: 27 UNITS, 1X/DAY
     Route: 058

REACTIONS (2)
  - INSOMNIA [None]
  - BLOOD GLUCOSE INCREASED [None]
